FAERS Safety Report 19286722 (Version 5)
Quarter: 2021Q3

REPORT INFORMATION
  Report Type: Report from Study
  Country: None (occurrence: PA)
  Receive Date: 20210522
  Receipt Date: 20210925
  Transmission Date: 20211014
  Serious: Yes (Other)
  Sender: FDA-Public Use
  Company Number: PA-ABBVIE-21K-125-3818586-00

PATIENT
  Age: 46 Year
  Sex: Female
  Weight: 72 kg

DRUGS (4)
  1. HUMIRA [Suspect]
     Active Substance: ADALIMUMAB
     Indication: ANKYLOSING SPONDYLITIS
     Route: 058
     Dates: start: 20210303, end: 20210430
  2. APIXABAN [Concomitant]
     Active Substance: APIXABAN
     Indication: VENOUS THROMBOSIS
     Dosage: IN THE MORNING AND AT NIGHT
     Route: 048
  3. ROSUVASTATIN. [Concomitant]
     Active Substance: ROSUVASTATIN
     Indication: BLOOD CHOLESTEROL INCREASED
     Dosage: AT NIGHT
     Route: 048
  4. SULFASALAZINE. [Concomitant]
     Active Substance: SULFASALAZINE
     Indication: ANKYLOSING SPONDYLITIS
     Route: 048

REACTIONS (10)
  - Colour blindness acquired [Not Recovered/Not Resolved]
  - Ocular discomfort [Recovering/Resolving]
  - Dizziness [Not Recovered/Not Resolved]
  - Influenza [Not Recovered/Not Resolved]
  - Injection site erythema [Recovering/Resolving]
  - Corneal disorder [Not Recovered/Not Resolved]
  - Photopsia [Not Recovered/Not Resolved]
  - Toxicity to various agents [Not Recovered/Not Resolved]
  - Migraine [Not Recovered/Not Resolved]
  - Dizziness [Unknown]

NARRATIVE: CASE EVENT DATE: 2021
